FAERS Safety Report 14202526 (Version 1)
Quarter: 2017Q4

REPORT INFORMATION
  Report Type: Spontaneous
  Country: FR (occurrence: FR)
  Receive Date: 20171117
  Receipt Date: 20171117
  Transmission Date: 20180321
  Serious: Yes (Other)
  Sender: FDA-Public Use
  Company Number: FR-ROCHE-2026651

PATIENT
  Age: 74 Year
  Sex: Female

DRUGS (4)
  1. SEROPLEX [Suspect]
     Active Substance: ESCITALOPRAM OXALATE
     Indication: DEPRESSION
     Route: 048
     Dates: start: 20170719
  2. COTAREG [Concomitant]
     Active Substance: HYDROCHLOROTHIAZIDE\VALSARTAN
     Route: 048
  3. MABTHERA [Suspect]
     Active Substance: RITUXIMAB
     Indication: ACUTE LEUKAEMIA
     Route: 058
     Dates: start: 20170719
  4. LEVOTHYROX [Concomitant]
     Active Substance: LEVOTHYROXINE
     Route: 048

REACTIONS (1)
  - Atrial fibrillation [Recovered/Resolved]

NARRATIVE: CASE EVENT DATE: 20170723
